FAERS Safety Report 25537827 (Version 2)
Quarter: 2025Q4

REPORT INFORMATION
  Report Type: Report from Study
  Country: CA (occurrence: CA)
  Receive Date: 20250710
  Receipt Date: 20251209
  Transmission Date: 20260118
  Serious: Yes (Hospitalization, Other)
  Sender: CELLTRION
  Company Number: CA-CELLTRION INC.-2025CA021897

PATIENT

DRUGS (2)
  1. ADALIMUMAB-AATY [Suspect]
     Active Substance: ADALIMUMAB-AATY
     Indication: Ankylosing spondylitis
     Dosage: MAINTENACE- 40MG-SC(SUBCUTANEOUS) EVERY 2 WEEKS /1 EVERY 2 WEEKS
     Route: 058
     Dates: start: 20250430
  2. ADALIMUMAB-AATY [Suspect]
     Active Substance: ADALIMUMAB-AATY
     Dosage: MAINTENACE- 40MG-SC(SUBCUTANEOUS) EVERY 2 WEEKS /1 EVERY 2 WEEKS
     Route: 058
     Dates: start: 20250626

REACTIONS (3)
  - Lower limb fracture [Recovering/Resolving]
  - Peripheral swelling [Recovering/Resolving]
  - Helicobacter infection [Recovering/Resolving]
